FAERS Safety Report 6629061-6 (Version None)
Quarter: 2010Q1

REPORT INFORMATION
  Report Type: 
  Country: None (occurrence: None)
  Receive Date: 20100311
  Receipt Date: 20090813
  Transmission Date: 20100710
  Serious: No
  Sender: FDA-Public Use
  Company Number: US-BIOGENIDEC-2009BI025495

PATIENT
  Age: 39 Year
  Sex: Female

DRUGS (1)
  1. AVONEX [Suspect]
     Indication: MULTIPLE SCLEROSIS
     Route: 030
     Dates: start: 20080201

REACTIONS (6)
  - CYSTITIS [None]
  - DRUG HYPERSENSITIVITY [None]
  - SINUSITIS [None]
  - SWELLING FACE [None]
  - TOOTH INFECTION [None]
  - TOOTHACHE [None]
